FAERS Safety Report 4590090-8 (Version None)
Quarter: 2005Q1

REPORT INFORMATION
  Report Type: 
  Country: None (occurrence: None)
  Receive Date: 20050217
  Receipt Date: 20050201
  Transmission Date: 20050727
  Serious: Yes (Other)
  Sender: FDA-Public Use
  Company Number: 2005JP000231

PATIENT
  Age: 51 Year
  Sex: Female
  Weight: 75 kg

DRUGS (5)
  1. TACROLIMUS CAPSULES(TACROLIMUS CAPSULES) [Suspect]
     Indication: MYASTHENIA GRAVIS
     Dosage: SEE IMAGE
     Route: 048
     Dates: start: 20010803, end: 20011004
  2. TACROLIMUS CAPSULES(TACROLIMUS CAPSULES) [Suspect]
     Indication: MYASTHENIA GRAVIS
     Dosage: SEE IMAGE
     Route: 048
     Dates: start: 20011005
  3. PREDNISOLONE [Suspect]
     Dosage: SEE IMAGE
     Route: 048
     Dates: end: 20030320
  4. PREDNISOLONE [Suspect]
     Dosage: SEE IMAGE
     Route: 048
     Dates: start: 20030321, end: 20030522
  5. PREDNISOLONE [Suspect]
     Dosage: SEE IMAGE
     Route: 048
     Dates: start: 20030523

REACTIONS (2)
  - DIPLOPIA [None]
  - HEADACHE [None]
